FAERS Safety Report 7151553 (Version 8)
Quarter: 2014Q1

REPORT INFORMATION
  Report Type: Report from Study
  Country: US (occurrence: GB)
  Receive Date: 20091016
  Receipt Date: 20140312
  Transmission Date: 20141002
  Serious: Yes (Congenital Anomaly, Other)
  Sender: FDA-Public Use
  Company Number: GB-B.I. PHARMACEUTICALS,INC./RIDGEFIELD-2006-UK-03596UK

PATIENT
  Age: 35 Year
  Sex: Female

DRUGS (9)
  1. KIVEXA [Suspect]
     Indication: PRODUCT USED FOR UNKNOWN INDICATION
     Route: 048
  2. KIVEXA [Suspect]
     Route: 048
     Dates: start: 20051225
  3. ABACAVIR [Suspect]
     Indication: PRODUCT USED FOR UNKNOWN INDICATION
     Route: 065
  4. LAMIVUDINE [Suspect]
     Indication: PRODUCT USED FOR UNKNOWN INDICATION
     Dosage: 2 ANZ
     Route: 065
     Dates: start: 20060411
  5. VIRAMUNE/NEVIRAPINE (EU/1/97/055/001-003) V [Suspect]
     Indication: HIV INFECTION
     Dosage: 400 MG
     Route: 048
     Dates: end: 20051225
  6. EPZICOM [Suspect]
     Indication: HIV INFECTION
     Route: 048
     Dates: end: 20051225
  7. COMBIVIR [Suspect]
     Indication: HIV INFECTION
     Dosage: 2 ANZ
     Route: 048
     Dates: start: 20060411
  8. NORVIR [Suspect]
     Indication: HIV INFECTION
     Dosage: 200 MG
     Route: 048
     Dates: start: 20060411
  9. INVIRASE [Suspect]
     Indication: HIV INFECTION
     Dosage: 2000 MG
     Route: 048
     Dates: start: 20060411

REACTIONS (2)
  - Laboratory test abnormal [Unknown]
  - Alpha 1 foetoprotein increased [Unknown]
